FAERS Safety Report 6877971-7 (Version None)
Quarter: 2010Q3

REPORT INFORMATION
  Report Type: 
  Country: None (occurrence: None)
  Receive Date: 20100727
  Receipt Date: 20100723
  Transmission Date: 20110219
  Serious: Yes (Life-Threatening, Hospitalization, Other)
  Sender: FDA-Public Use
  Company Number: PHFR2007GB01495

PATIENT
  Sex: Male

DRUGS (7)
  1. CLOZARIL [Suspect]
     Indication: SCHIZOPHRENIA
     Dosage: 100 MG MANE AND 500 MG NOCTE
     Route: 048
     Dates: start: 20020801, end: 20070429
  2. CLOZARIL [Suspect]
     Dosage: 500 MG
  3. METRONIDAZOLE [Concomitant]
  4. LANSOPRAZOLE [Concomitant]
     Dosage: 30 MG, QD
  5. ALBUTEROL [Concomitant]
     Dosage: QDS
  6. IPRATROPIUM BROMIDE [Concomitant]
     Dosage: 0.5 MG, TID
  7. PARACETAMOL [Concomitant]
     Dosage: 1 G QDS

REACTIONS (21)
  - ABDOMINAL DISTENSION [None]
  - ABDOMINAL SEPSIS [None]
  - BLOOD ALBUMIN DECREASED [None]
  - CATABOLIC STATE [None]
  - CELLULITIS [None]
  - CONSTIPATION [None]
  - DRUG LEVEL DECREASED [None]
  - ILEUS [None]
  - INTESTINAL OBSTRUCTION [None]
  - LAPAROTOMY [None]
  - MALAISE [None]
  - MECHANICAL VENTILATION [None]
  - MULTI-ORGAN FAILURE [None]
  - OSTEOMYELITIS [None]
  - PAIN [None]
  - PANCREATITIS [None]
  - PARENTERAL NUTRITION [None]
  - PURULENCE [None]
  - SEPSIS [None]
  - TOOTH EXTRACTION [None]
  - VOMITING [None]
